FAERS Safety Report 5081014-8 (Version None)
Quarter: 2006Q3

REPORT INFORMATION
  Report Type: 
  Country: None (occurrence: None)
  Receive Date: 20060810
  Receipt Date: 20060630
  Transmission Date: 20061208
  Serious: Yes (Hospitalization)
  Sender: FDA-Public Use
  Company Number: URSO-2006-032

PATIENT
  Sex: Male

DRUGS (3)
  1. DELURSAN (URSODESOXYCHOLIC ACID) [Suspect]
     Indication: HEPATIC PAIN
     Dosage: PO
     Route: 048
  2. DELURSAN (URSODESOXYCHOLIC ACID) [Suspect]
     Indication: TRANSAMINASES INCREASED
     Dosage: PO
     Route: 048
  3. METHOTREXATE [Concomitant]

REACTIONS (2)
  - DRUG INTERACTION [None]
  - DRUG LEVEL DECREASED [None]
